FAERS Safety Report 8723299 (Version 10)
Quarter: 2013Q4

REPORT INFORMATION
  Report Type: Spontaneous
  Country: CA (occurrence: CA)
  Receive Date: 20120814
  Receipt Date: 20131007
  Transmission Date: 20140711
  Serious: Yes (Hospitalization, Other)
  Sender: FDA-Public Use
  Company Number: CA-ROCHE-1057886

PATIENT
  Age: 49 Year
  Sex: Male

DRUGS (4)
  1. XOLAIR [Suspect]
     Indication: ASTHMA
     Route: 058
     Dates: start: 20110601
  2. ADVAIR [Concomitant]
  3. SPIRIVA [Concomitant]
  4. UNIPHYL [Concomitant]

REACTIONS (9)
  - Gastric cancer [Unknown]
  - Oesophageal carcinoma [Unknown]
  - Nausea [Unknown]
  - Fatigue [Unknown]
  - Malaise [Unknown]
  - Asthenia [Unknown]
  - General physical health deterioration [Unknown]
  - Metastases to liver [Unknown]
  - Feeding tube complication [Unknown]
